FAERS Safety Report 16634520 (Version 2)
Quarter: 2019Q3

REPORT INFORMATION
  Report Type: Report from Study
  Country: None (occurrence: US)
  Receive Date: 20190726
  Receipt Date: 20190814
  Transmission Date: 20191004
  Serious: Yes (Hospitalization)
  Sender: FDA-Public Use
  Company Number: US-ABBVIE-19K-163-2865040-00

PATIENT
  Age: 54 Year
  Sex: Female

DRUGS (1)
  1. MAVYRET [Suspect]
     Active Substance: GLECAPREVIR\PIBRENTASVIR
     Indication: HEPATITIS C
     Dosage: 100/40MG,TABLET 84 NUMBER EA
     Route: 048
     Dates: start: 20190703

REACTIONS (5)
  - Fall [Unknown]
  - Loss of consciousness [Unknown]
  - Joint instability [Unknown]
  - Head injury [Unknown]
  - Malaise [Unknown]

NARRATIVE: CASE EVENT DATE: 20190720
